FAERS Safety Report 15799669 (Version 1)
Quarter: 2019Q1

REPORT INFORMATION
  Report Type: Spontaneous
  Country: US (occurrence: US)
  Receive Date: 20190108
  Receipt Date: 20190108
  Transmission Date: 20190417
  Serious: Yes (Other)
  Sender: FDA-Public Use
  Company Number: US-TESAROUBC-2018-TSO1289-US

PATIENT
  Sex: Female
  Weight: 33.56 kg

DRUGS (1)
  1. ZEJULA [Suspect]
     Active Substance: NIRAPARIB
     Indication: OVARIAN CANCER
     Dosage: 300 MG, QD
     Route: 048
     Dates: start: 20180822

REACTIONS (3)
  - Thrombocytopenia [Recovering/Resolving]
  - Decreased appetite [Recovered/Resolved]
  - Weight decreased [Unknown]
